FAERS Safety Report 23682280 (Version 1)
Quarter: 2024Q1

REPORT INFORMATION
  Report Type: Spontaneous
  Country: US (occurrence: None)
  Receive Date: 20240327
  Receipt Date: 20240327
  Transmission Date: 20240410
  Serious: Yes (Other)
  Sender: FDA-Public Use
  Company Number: None

PATIENT
  Age: 69 Year
  Sex: Female
  Weight: 63 kg

DRUGS (11)
  1. IBANDRONATE SODIUM [Suspect]
     Active Substance: IBANDRONATE SODIUM
     Indication: Osteoporosis
     Dosage: 1 TABLET  1 PER MONTH ORAL?
     Route: 048
     Dates: start: 20240324, end: 20240324
  2. VITAMIN A [Concomitant]
     Active Substance: VITAMIN A
  3. VITAMIN B12 [Concomitant]
     Active Substance: CYANOCOBALAMIN
  4. VITAMIN C [Concomitant]
     Active Substance: ASCORBIC ACID
  5. VITAMIN D3 [Concomitant]
     Active Substance: CHOLECALCIFEROL
  6. VITAMIN E [Concomitant]
     Active Substance: .ALPHA.-TOCOPHEROL
  7. Minerals Ca [Concomitant]
  8. Mineral Mg [Concomitant]
  9. Mineral Zn [Concomitant]
  10. FISH OIL [Concomitant]
     Active Substance: FISH OIL
  11. COENZYME Q10 [Concomitant]
     Active Substance: DIETARY SUPPLEMENT\UBIDECARENONE

REACTIONS (5)
  - Pain [None]
  - Decreased activity [None]
  - Asthenia [None]
  - Myalgia [None]
  - Somnolence [None]

NARRATIVE: CASE EVENT DATE: 20240325
